FAERS Safety Report 6566826-3 (Version None)
Quarter: 2010Q1

REPORT INFORMATION
  Report Type: 
  Country: None (occurrence: None)
  Receive Date: 20100202
  Receipt Date: 20100128
  Transmission Date: 20100710
  Serious: Yes (Hospitalization)
  Sender: FDA-Public Use
  Company Number: A0841883A

PATIENT
  Sex: Male

DRUGS (5)
  1. FLOVENT [Suspect]
     Indication: ASTHMA
     Dosage: 2PUFF TWICE PER DAY
     Route: 055
     Dates: start: 20070101
  2. ADVAIR DISKUS 100/50 [Suspect]
     Indication: ASTHMA
     Dosage: 1PUFF PER DAY
     Route: 055
  3. ALBUTEROL [Concomitant]
  4. CLARITIN [Concomitant]
  5. SPIRIVA [Concomitant]

REACTIONS (6)
  - BRONCHITIS [None]
  - DRUG HYPERSENSITIVITY [None]
  - INCREASED UPPER AIRWAY SECRETION [None]
  - PRURITUS [None]
  - RESPIRATORY DISORDER [None]
  - UPPER RESPIRATORY TRACT INFECTION [None]
